FAERS Safety Report 17335968 (Version 2)
Quarter: 2020Q1

REPORT INFORMATION
  Report Type: Spontaneous
  Country: US (occurrence: US)
  Receive Date: 20200128
  Receipt Date: 20200316
  Transmission Date: 20200409
  Serious: No
  Sender: FDA-Public Use
  Company Number: US-009507513-2001USA008652

PATIENT
  Age: 24 Year
  Sex: Female

DRUGS (2)
  1. PROVENTIL [Suspect]
     Active Substance: ALBUTEROL
     Dosage: TAKE AS NEEDED, ROUTE REPORTED AS ^^THROUGH THE MOUTH^^
     Dates: start: 2014
  2. PROVENTIL [Suspect]
     Active Substance: ALBUTEROL
     Dosage: TAKE AS NEEDED, ROUTE REPORTED AS ^^THROUGH THE MOUTH^^
     Dates: start: 20200120

REACTIONS (4)
  - Inappropriate schedule of product administration [Unknown]
  - No adverse event [Unknown]
  - Product quality issue [Unknown]
  - Poor quality device used [Unknown]

NARRATIVE: CASE EVENT DATE: 2014
